FAERS Safety Report 24528789 (Version 1)
Quarter: 2024Q4

REPORT INFORMATION
  Report Type: Other
  Country: LT (occurrence: LT)
  Receive Date: 20241021
  Receipt Date: 20241021
  Transmission Date: 20250115
  Serious: Yes (Hospitalization)
  Sender: ANI
  Company Number: LT-ANIPHARMA-012585

PATIENT
  Age: 21 Year
  Sex: Male

DRUGS (9)
  1. RISPERIDONE [Suspect]
     Active Substance: RISPERIDONE
     Indication: Bipolar disorder
  2. FLUOXETINE [Suspect]
     Active Substance: FLUOXETINE HYDROCHLORIDE
     Indication: Mixed anxiety and depressive disorder
  3. MIRTAZAPINE [Concomitant]
     Active Substance: MIRTAZAPINE
     Indication: Mixed anxiety and depressive disorder
  4. ESCITALOPRAM [Concomitant]
     Active Substance: ESCITALOPRAM OXALATE
     Indication: Mixed anxiety and depressive disorder
  5. BUPROPION [Concomitant]
     Active Substance: BUPROPION
     Indication: Mixed anxiety and depressive disorder
  6. VALPROATE SODIUM [Concomitant]
     Active Substance: VALPROATE SODIUM
     Indication: Bipolar disorder
  7. ARIPIPRAZOLE [Concomitant]
     Active Substance: ARIPIPRAZOLE
     Indication: Bipolar disorder
  8. LITHIUM [Concomitant]
     Active Substance: LITHIUM
     Indication: Bipolar disorder
     Dosage: DOSE INCREASED
  9. AMISULPRIDE [Concomitant]
     Active Substance: AMISULPRIDE
     Indication: Bipolar disorder

REACTIONS (4)
  - Nasal congestion [Unknown]
  - Drug effect less than expected [Not Recovered/Not Resolved]
  - Depression [Unknown]
  - Mania [Unknown]
